FAERS Safety Report 8732120 (Version 2)
Quarter: 2012Q4

REPORT INFORMATION
  Report Type: 
  Country: JP (occurrence: JP)
  Receive Date: 20120820
  Receipt Date: 20120904
  Transmission Date: 20130627
  Serious: Yes (Hospitalization)
  Sender: FDA-Public Use
  Company Number: JP-PFIZER INC-2012202166

PATIENT
  Age: 3 Month
  Sex: Male

DRUGS (6)
  1. CISPLATIN [Suspect]
     Indication: NEUROBLASTOMA
     Dosage: 18 mg/m2, cyclic (for 5 days on Days 1 to 5)
  2. PIRARUBICIN [Suspect]
     Indication: NEUROBLASTOMA
     Dosage: 25 mg/m2, cyclic (for 1 day on Day 3)
  3. VINCRISTINE [Suspect]
     Indication: NEUROBLASTOMA
     Dosage: 1.5 mg/m2, cyclic (for 1 day on Day 1)
  4. CYCLOPHOSPHAMIDE [Suspect]
     Indication: NEUROBLASTOMA
     Dosage: 1200 mg/m2, cyclic (for 1 day on Day 1)
  5. ALLOPURINOL [Concomitant]
     Indication: TUMOUR LYSIS SYNDROME
     Dosage: 300 mg/m2, 1x/day
  6. DALTEPARIN SODIUM [Concomitant]
     Indication: THROMBOSIS PROPHYLAXIS
     Dosage: 75 units/kg/day
     Route: 041

REACTIONS (1)
  - Histiocytosis haematophagic [Recovered/Resolved]
